FAERS Safety Report 7058340-6 (Version None)
Quarter: 2010Q4

REPORT INFORMATION
  Report Type: 
  Country: None (occurrence: None)
  Receive Date: 20101022
  Receipt Date: 20101015
  Transmission Date: 20110411
  Serious: No
  Sender: FDA-Public Use
  Company Number: US-PFIZER INC-2010107616

PATIENT
  Age: 74 Year
  Sex: Female

DRUGS (1)
  1. NEURONTIN [Suspect]
     Indication: NEUROPATHY PERIPHERAL
     Dosage: 100 MG, 4X/DAY
     Route: 048
     Dates: start: 20100701

REACTIONS (2)
  - ALOPECIA [None]
  - HAIR DISORDER [None]
